FAERS Safety Report 6344484-0 (Version None)
Quarter: 2009Q3

REPORT INFORMATION
  Report Type: 
  Country: None (occurrence: None)
  Receive Date: 20090908
  Receipt Date: 20090825
  Transmission Date: 20100115
  Serious: Yes (Other)
  Sender: FDA-Public Use
  Company Number: US-PFIZER INC-2009260020

PATIENT
  Age: 52 Year
  Sex: Female

DRUGS (5)
  1. HALOPERIDOL [Suspect]
     Dosage: 5 MG, 3X/DAY
     Route: 042
  2. ZIPRASIDONE HCL [Suspect]
     Dosage: 20 MG, 2X/DAY
     Route: 048
  3. LORAZEPAM [Suspect]
     Dosage: 2 MG, EVERY 4 HRS
     Route: 042
  4. LITHIUM [Suspect]
     Dosage: 150 MG, 1X/DAY
     Route: 048
  5. THIOTHIXENE [Suspect]
     Dosage: 10 MG, 1X/DAY
     Route: 048

REACTIONS (1)
  - RESPIRATORY DEPRESSION [None]
